FAERS Safety Report 7345662-4 (Version None)
Quarter: 2011Q1

REPORT INFORMATION
  Report Type: 
  Country: None (occurrence: None)
  Receive Date: 20110310
  Receipt Date: 20110308
  Transmission Date: 20110831
  Serious: Yes (Hospitalization)
  Sender: FDA-Public Use
  Company Number: B0700255A

PATIENT
  Age: 60 Year
  Sex: Male

DRUGS (2)
  1. AVANDIA [Suspect]
     Dosage: 4MG TWICE PER DAY
     Route: 048
     Dates: start: 20050519, end: 20070323
  2. AVANDAMET [Suspect]
     Route: 048
     Dates: start: 20050207, end: 20071203

REACTIONS (3)
  - MYOCARDIAL INFARCTION [None]
  - RENAL FAILURE ACUTE [None]
  - MYOCARDIAL ISCHAEMIA [None]
